FAERS Safety Report 20986993 (Version 1)
Quarter: 2022Q2

REPORT INFORMATION
  Report Type: Spontaneous
  Country: US (occurrence: None)
  Receive Date: 20220618
  Receipt Date: 20220618
  Transmission Date: 20220721
  Serious: Yes (Other)
  Sender: FDA-Public Use
  Company Number: None

PATIENT
  Age: 75 Year
  Sex: Female
  Weight: 60.75 kg

DRUGS (19)
  1. RINVOQ [Suspect]
     Active Substance: UPADACITINIB
     Indication: Rheumatoid arthritis
     Dosage: FREQUENCY : DAILY;?
     Route: 048
     Dates: start: 20210618, end: 20211211
  2. ACYCLOVIR [Concomitant]
     Active Substance: ACYCLOVIR
  3. CICLOPIROX [Concomitant]
     Active Substance: CICLOPIROX
  4. METHOTREXATE [Concomitant]
     Active Substance: METHOTREXATE
  5. METOPROLOL [Concomitant]
     Active Substance: METOPROLOL
  6. Premarin topical [Concomitant]
  7. ROGAINE [Concomitant]
     Active Substance: MINOXIDIL
  8. SIMVASTATIN [Concomitant]
     Active Substance: SIMVASTATIN
  9. SODIUM BICARBONATE [Concomitant]
     Active Substance: SODIUM BICARBONATE
  10. SPIRONOLACTONE [Concomitant]
     Active Substance: SPIRONOLACTONE
  11. MINERALS\VITAMINS [Concomitant]
     Active Substance: MINERALS\VITAMINS
  12. Cranberry pills [Concomitant]
  13. Folate Caltrate [Concomitant]
  14. VITAMIN D3 [Concomitant]
     Active Substance: CHOLECALCIFEROL
  15. VIT C [Concomitant]
  16. Omega3 fish oil [Concomitant]
  17. COENZYME Q10 [Concomitant]
     Active Substance: DIETARY SUPPLEMENT\UBIDECARENONE
  18. VITAMINS [Concomitant]
     Active Substance: VITAMINS
  19. Vitamin B12 [Concomitant]

REACTIONS (6)
  - Acne [None]
  - Alopecia [None]
  - Blood pressure increased [None]
  - Tachycardia [None]
  - Abdominal pain [None]
  - Therapy cessation [None]

NARRATIVE: CASE EVENT DATE: 20211211
